FAERS Safety Report 6552676-0 (Version None)
Quarter: 2010Q1

REPORT INFORMATION
  Report Type: 
  Country: None (occurrence: None)
  Receive Date: 20100126
  Receipt Date: 20100119
  Transmission Date: 20100710
  Serious: Yes (Hospitalization)
  Sender: FDA-Public Use
  Company Number: B0626961A

PATIENT
  Sex: Female

DRUGS (14)
  1. VENTOLIN [Suspect]
     Indication: ASTHMA
     Route: 055
     Dates: start: 20091106, end: 20091107
  2. ZOVIRAX [Suspect]
     Indication: INFECTION
     Route: 042
     Dates: start: 20091107, end: 20091107
  3. AMOXICILLIN [Suspect]
     Indication: BACTERIAL INFECTION
     Route: 048
     Dates: start: 20091106, end: 20091107
  4. TAMIFLU [Suspect]
     Dosage: 150MG PER DAY
     Route: 048
     Dates: start: 20091107, end: 20091110
  5. IBUPROFENE [Suspect]
     Indication: PAIN
     Route: 048
     Dates: start: 20091106, end: 20091107
  6. PULMICORT [Suspect]
     Indication: ASTHMA
     Route: 055
     Dates: start: 20091106, end: 20091107
  7. EXOMUC [Suspect]
     Indication: COUGH
     Route: 048
     Dates: start: 20091106, end: 20091107
  8. DOMPERIDONE [Suspect]
     Indication: VOMITING
     Route: 048
     Dates: start: 20091106, end: 20091107
  9. OMEPRAZOLE [Suspect]
     Route: 048
     Dates: start: 20091106, end: 20091107
  10. CLAFORAN [Suspect]
     Indication: INFECTION
     Route: 042
     Dates: start: 20091107, end: 20091107
  11. PARACETAMOL [Concomitant]
     Indication: PAIN
     Route: 048
     Dates: start: 20091106, end: 20091114
  12. BRICANYL [Concomitant]
     Indication: ASTHMA
     Route: 055
     Dates: start: 20091107, end: 20091114
  13. ATROVENT [Concomitant]
     Indication: ASTHMA
     Route: 055
     Dates: start: 20091107, end: 20091114
  14. LOVENOX [Concomitant]
     Indication: THROMBOSIS
     Route: 058
     Dates: start: 20091107, end: 20091114

REACTIONS (1)
  - HEPATOCELLULAR INJURY [None]
